FAERS Safety Report 10453354 (Version 1)
Quarter: 2014Q3

REPORT INFORMATION
  Report Type: Spontaneous
  Country: US (occurrence: None)
  Receive Date: 20140912
  Receipt Date: 20140912
  Transmission Date: 20150326
  Serious: Yes (Other)
  Sender: FDA-Public Use
  Company Number: None

PATIENT

DRUGS (1)
  1. ADVIL [Suspect]
     Active Substance: IBUPROFEN
     Indication: MYALGIA
     Dates: start: 20140911

REACTIONS (6)
  - Dyspepsia [None]
  - Oesophagitis [None]
  - Dyspnoea [None]
  - Chest pain [None]
  - Oropharyngeal pain [None]
  - Dizziness [None]

NARRATIVE: CASE EVENT DATE: 20140911
